FAERS Safety Report 5041441-1 (Version None)
Quarter: 2006Q2

REPORT INFORMATION
  Report Type: 
  Country: None (occurrence: None)
  Receive Date: 20060626
  Receipt Date: 20060615
  Transmission Date: 20061013
  Serious: Yes (Hospitalization, Other)
  Sender: FDA-Public Use
  Company Number: CHPA2006US05927

PATIENT
  Age: 29 Year
  Sex: Female
  Weight: 48.1 kg

DRUGS (3)
  1. EXCEDRIN EXTRA STRENGTH (NCH)(CAFFEINE CITRATE, ACETYLSALICYLIC ACID, [Suspect]
     Indication: HEADACHE
     Dosage: 1500 MG, QD
     Dates: start: 20051002
  2. EXCEDRIN EXTRA STRENGTH (NCH)(CAFFEINE CITRATE, ACETYLSALICYLIC ACID, [Suspect]
     Indication: HEADACHE
     Dosage: 1500 MG, QD
     Dates: start: 20051009
  3. NUVARING [Suspect]
     Indication: CONTRACEPTION
     Dates: start: 20050815

REACTIONS (29)
  - ANTINUCLEAR ANTIBODY POSITIVE [None]
  - ARTHRALGIA [None]
  - ASTHENIA [None]
  - CARDIOVASCULAR DISORDER [None]
  - CONSTIPATION [None]
  - DIZZINESS [None]
  - FEELING HOT [None]
  - FOOD INTOLERANCE [None]
  - GASTRIC DISORDER [None]
  - HEADACHE [None]
  - HYPERSENSITIVITY [None]
  - HYPOMENORRHOEA [None]
  - INFLUENZA LIKE ILLNESS [None]
  - LOSS OF CONSCIOUSNESS [None]
  - MENSTRUAL DISORDER [None]
  - METRORRHAGIA [None]
  - MUSCLE SPASMS [None]
  - MUSCULAR WEAKNESS [None]
  - NAUSEA [None]
  - NIGHT SWEATS [None]
  - OXYGEN SATURATION DECREASED [None]
  - PYREXIA [None]
  - SENSATION OF HEAVINESS [None]
  - SWOLLEN TONGUE [None]
  - SYNCOPE [None]
  - THERAPEUTIC RESPONSE DECREASED [None]
  - THROMBOSIS [None]
  - VISION BLURRED [None]
  - VOMITING [None]
